FAERS Safety Report 6614474-9 (Version None)
Quarter: 2010Q1

REPORT INFORMATION
  Report Type: 
  Country: None (occurrence: None)
  Receive Date: 20100304
  Receipt Date: 20100304
  Transmission Date: 20100710
  Serious: Yes (Hospitalization)
  Sender: FDA-Public Use
  Company Number: None

PATIENT
  Age: 62 Year
  Sex: Female
  Weight: 89.1 kg

DRUGS (1)
  1. CELECOXIB [Suspect]
     Dosage: 400 MG X 14 DAYS BID PO
     Route: 048

REACTIONS (3)
  - CONSTIPATION [None]
  - MEDICATION RESIDUE [None]
  - VOMITING [None]
